FAERS Safety Report 11760183 (Version 2)
Quarter: 2016Q1

REPORT INFORMATION
  Report Type: Spontaneous
  Country: US (occurrence: US)
  Receive Date: 20151120
  Receipt Date: 20160301
  Transmission Date: 20160525
  Serious: Yes (Other)
  Sender: FDA-Public Use
  Company Number: US-TEVA-610771ACC

PATIENT
  Age: 34 Year
  Sex: Female
  Weight: 97.61 kg

DRUGS (1)
  1. PARAGARD T 380A [Suspect]
     Active Substance: COPPER
     Indication: CONTRACEPTION
     Dosage: 26-MAY-2015
     Route: 015
     Dates: start: 20150526

REACTIONS (2)
  - Device expulsion [Unknown]
  - Device dislocation [Unknown]

NARRATIVE: CASE EVENT DATE: 20151106
